FAERS Safety Report 9387451 (Version 1)
Quarter: 2013Q3

REPORT INFORMATION
  Report Type: Spontaneous
  Country: US (occurrence: None)
  Receive Date: 20130702
  Receipt Date: 20130702
  Transmission Date: 20140515
  Serious: Yes (Hospitalization)
  Sender: FDA-Public Use
  Company Number: AUR-APL-2013-05449

PATIENT
  Age: 41 Year
  Sex: Female
  Weight: 50.79 kg

DRUGS (3)
  1. ALPRAZOLAM [Suspect]
     Indication: ANXIETY
     Route: 048
     Dates: start: 20130615
  2. SUMATRIPTAN [Suspect]
     Route: 048
     Dates: start: 2012
  3. SYNTHROID (LEVOTHYROXINE SODIUM) [Concomitant]

REACTIONS (5)
  - Migraine [None]
  - Cardiac disorder [None]
  - Coeliac disease [None]
  - Condition aggravated [None]
  - Malaise [None]
